FAERS Safety Report 22057951 (Version 1)
Quarter: 2023Q1

REPORT INFORMATION
  Report Type: Report from Study
  Country: CA (occurrence: CA)
  Receive Date: 20230303
  Receipt Date: 20230303
  Transmission Date: 20230417
  Serious: Yes (Other)
  Sender: FDA-Public Use
  Company Number: CA-ABBVIE-4326169

PATIENT
  Sex: Female

DRUGS (1)
  1. SKYRIZI [Suspect]
     Active Substance: RISANKIZUMAB-RZAA
     Indication: Psoriasis
     Route: 058
     Dates: start: 20201013

REACTIONS (5)
  - Basal cell carcinoma [Unknown]
  - Pruritus [Unknown]
  - Autoimmune disorder [Unknown]
  - Renal cancer [Unknown]
  - Therapeutic response shortened [Unknown]
